FAERS Safety Report 10653871 (Version 1)
Quarter: 2014Q4

REPORT INFORMATION
  Report Type: Spontaneous
  Country: US (occurrence: None)
  Receive Date: 20141212
  Receipt Date: 20141212
  Transmission Date: 20150529
  Serious: Yes (Other)
  Sender: FDA-Public Use
  Company Number: BR14-437-AE PATIENT #1

PATIENT
  Sex: Male

DRUGS (1)
  1. BUPRENORPHINE / NALOXONE DIHYDRATE [Suspect]
     Active Substance: BUPRENORPHINE\NALOXONE

REACTIONS (3)
  - Generalised tonic-clonic seizure [None]
  - Product substitution issue [None]
  - Drug withdrawal syndrome [None]
